FAERS Safety Report 15312121 (Version 1)
Quarter: 2018Q3

REPORT INFORMATION
  Report Type: Spontaneous
  Country: BE (occurrence: BE)
  Receive Date: 20180823
  Receipt Date: 20180823
  Transmission Date: 20181010
  Serious: Yes (Death)
  Sender: FDA-Public Use
  Company Number: BE-SA-2018SA221222

PATIENT
  Age: 86 Year
  Sex: Male

DRUGS (11)
  1. PLAVIX [Suspect]
     Active Substance: CLOPIDOGREL BISULFATE
     Indication: STENT PLACEMENT
     Dosage: 300 MG, QD
     Route: 048
     Dates: start: 20180712, end: 20180712
  2. PLAVIX [Suspect]
     Active Substance: CLOPIDOGREL BISULFATE
     Dosage: 75 MG, QD
     Route: 048
     Dates: start: 20180713
  3. UROKINASE [Suspect]
     Active Substance: UROKINASE
     Indication: THROMBOSIS PROPHYLAXIS
     Dosage: 100.000UI 1X
     Route: 042
     Dates: start: 20180712, end: 20180712
  4. UROKINASE [Suspect]
     Active Substance: UROKINASE
     Indication: MICROEMBOLISM
  5. NOVOMIX [Concomitant]
     Active Substance: INSULIN ASPART
     Indication: DIABETES MELLITUS
     Dosage: 4 IU, QD
     Dates: start: 20180704
  6. CREON [Concomitant]
     Active Substance: PANCRELIPASE AMYLASE\PANCRELIPASE LIPASE\PANCRELIPASE PROTEASE
     Dosage: 150 MG, QD
  7. NOVALGIN (METAMIZOLE SODIUM) [Concomitant]
     Active Substance: METAMIZOLE SODIUM
     Dosage: 120 DROP, QD
     Dates: start: 20180705
  8. OMNIC OCAS [Concomitant]
     Active Substance: TAMSULOSIN HYDROCHLORIDE
     Dosage: 0.4 MG, QD
     Dates: start: 20180705
  9. DAFALGAN [Concomitant]
     Active Substance: ACETAMINOPHEN
     Dosage: 3 G, QD
  10. PANTOMED [DEXPANTHENOL] [Concomitant]
     Indication: PROPHYLAXIS
     Dosage: 20 MG, QD
     Dates: start: 20180712
  11. TEMESTA [ASTEMIZOLE] [Concomitant]
     Dosage: 2.5 MG, QD

REACTIONS (3)
  - Blood pressure decreased [Fatal]
  - Haematoma [Fatal]
  - Malaise [Fatal]

NARRATIVE: CASE EVENT DATE: 20180713
